FAERS Safety Report 8475129-1 (Version None)
Quarter: 2012Q2

REPORT INFORMATION
  Report Type: 
  Country: None (occurrence: None)
  Receive Date: 20120628
  Receipt Date: 20120624
  Transmission Date: 20120825
  Serious: No
  Sender: FDA-Public Use
  Company Number: US-PFIZER INC-2012152075

PATIENT

DRUGS (1)
  1. LYRICA [Suspect]
     Indication: NEUROPATHY PERIPHERAL
     Dosage: 600 MG, A DAY

REACTIONS (5)
  - PARAESTHESIA [None]
  - BURNING SENSATION [None]
  - DRUG INEFFECTIVE [None]
  - PAIN [None]
  - INCORRECT DOSE ADMINISTERED [None]
